FAERS Safety Report 4451199-2 (Version None)
Quarter: 2004Q3

REPORT INFORMATION
  Report Type: 
  Country: None (occurrence: None)
  Receive Date: 20040914
  Receipt Date: 20040825
  Transmission Date: 20050211
  Serious: Yes (Hospitalization)
  Sender: FDA-Public Use
  Company Number: WAES 0408USA02359

PATIENT
  Age: 74 Year
  Sex: Male

DRUGS (6)
  1. COZAAR [Suspect]
     Indication: HYPERTENSION
     Dosage: 50 MG/DAILY PO
     Route: 048
     Dates: start: 20001116, end: 20031111
  2. NORVASC [Suspect]
     Indication: HYPERTENSION
     Dosage: 5 MG/DAILY PO
     Route: 048
     Dates: start: 20030701, end: 20031111
  3. DOXAZOSIN MESYLATE [Suspect]
     Indication: HYPERTENSION
     Dosage: 2 MG/DAILY PO
     Route: 048
     Dates: start: 20030701, end: 20031111
  4. CARVEDILOL [Suspect]
     Indication: HYPERTENSION
     Dosage: 10 MG/DAILY PO
     Route: 048
     Dates: start: 20030701, end: 20031111
  5. TRICHLORMETHIAZIDE [Suspect]
     Indication: HYPERTENSION
     Dosage: 2 MG/DAILY PO
     Route: 048
     Dates: start: 20030701, end: 20031111
  6. ASPIRIN [Suspect]
     Indication: ANTICOAGULANT THERAPY
     Dosage: 100 MG/DAILY PO
     Route: 048
     Dates: start: 20030701, end: 20031111

REACTIONS (2)
  - CEREBRAL ARTERY EMBOLISM [None]
  - DEPRESSED LEVEL OF CONSCIOUSNESS [None]
